FAERS Safety Report 9355353 (Version 1)
Quarter: 2013Q2

REPORT INFORMATION
  Report Type: Spontaneous
  Country: NL (occurrence: NL)
  Receive Date: 20130619
  Receipt Date: 20130619
  Transmission Date: 20140414
  Serious: Yes (Hospitalization, Other)
  Sender: FDA-Public Use
  Company Number: NL-BAYER-2013-072327

PATIENT
  Age: 57 Year
  Sex: Female
  Weight: 62 kg

DRUGS (2)
  1. ACETYLSALICYLIC ACID({=100 MG) [Suspect]
     Indication: TAKAYASU^S ARTERITIS
     Dosage: 1 DF, QD
     Dates: start: 20120628
  2. FLECAINIDE [Concomitant]
     Dosage: 100 MG, TID

REACTIONS (2)
  - Ear disorder [Not Recovered/Not Resolved]
  - Fatigue [Recovering/Resolving]
